FAERS Safety Report 4991430-8 (Version None)
Quarter: 2006Q2

REPORT INFORMATION
  Report Type: 
  Country: None (occurrence: None)
  Receive Date: 20060502
  Receipt Date: 20060426
  Transmission Date: 20061013
  Serious: Yes (Hospitalization, Other)
  Sender: FDA-Public Use
  Company Number: TCI2006A01846

PATIENT
  Age: 81 Year
  Sex: Female

DRUGS (4)
  1. ACTOS [Suspect]
     Indication: DIABETES MELLITUS
     Dosage: 30 MG (30 MG, 1 D) PER ORAL
     Route: 048
     Dates: start: 20051101, end: 20060405
  2. BASEN       (VOGLIBOSE) [Concomitant]
  3. EUGLUCON       (GLIBENCLAMIDE) [Concomitant]
  4. STATIN (HMG COA REDUCTASE INHIBITORS) [Concomitant]

REACTIONS (3)
  - DYSPNOEA [None]
  - HYPOGLYCAEMIA [None]
  - PLEURAL EFFUSION [None]
